FAERS Safety Report 15364923 (Version 2)
Quarter: 2018Q4

REPORT INFORMATION
  Report Type: Spontaneous
  Country: AT (occurrence: AT)
  Receive Date: 20180910
  Receipt Date: 20181201
  Transmission Date: 20190204
  Serious: Yes (Other)
  Sender: FDA-Public Use
  Company Number: AT-AMGEN-AUTSP2018124096

PATIENT
  Sex: Female

DRUGS (2)
  1. XGEVA [Suspect]
     Active Substance: DENOSUMAB
     Indication: PLASMA CELL MYELOMA
     Dosage: 120 MG, QMO
     Route: 065
     Dates: start: 201802
  2. XGEVA [Suspect]
     Active Substance: DENOSUMAB
     Dosage: 120 MG, Q3MO
     Route: 065

REACTIONS (4)
  - Tooth extraction [Unknown]
  - Osteonecrosis of jaw [Unknown]
  - Impaired healing [Unknown]
  - Off label use [Unknown]
